FAERS Safety Report 7471085-3 (Version None)
Quarter: 2011Q2

REPORT INFORMATION
  Report Type: 
  Country: None (occurrence: None)
  Receive Date: 20110506
  Receipt Date: 20110506
  Transmission Date: 20111010
  Serious: Yes (Other)
  Sender: FDA-Public Use
  Company Number: None

PATIENT
  Sex: Female
  Weight: 65.7716 kg

DRUGS (1)
  1. TRAMADOL HCL [Suspect]
     Indication: PAIN
     Dosage: 1 EVERY 6 HRS BY MOUTH
     Route: 048
     Dates: start: 20110215

REACTIONS (10)
  - NAUSEA [None]
  - FATIGUE [None]
  - HEADACHE [None]
  - ARTHRALGIA [None]
  - INSOMNIA [None]
  - VOMITING [None]
  - PRURITUS GENERALISED [None]
  - DYSPNOEA [None]
  - DECREASED APPETITE [None]
  - DIZZINESS [None]
